FAERS Safety Report 9283604 (Version 1)
Quarter: 2013Q2

REPORT INFORMATION
  Report Type: Spontaneous
  Country: DE (occurrence: None)
  Receive Date: 20130508
  Receipt Date: 20130508
  Transmission Date: 20140414
  Serious: Yes (Death)
  Sender: FDA-Public Use
  Company Number: 2013P1005153

PATIENT
  Sex: Male

DRUGS (1)
  1. VALPROATE [Suspect]
     Indication: CLUSTER HEADACHE

REACTIONS (2)
  - Intentional overdose [None]
  - Hepatic failure [None]
